FAERS Safety Report 5113052-0 (Version None)
Quarter: 2006Q3

REPORT INFORMATION
  Report Type: 
  Country: None (occurrence: None)
  Receive Date: 20060922
  Receipt Date: 20060707
  Transmission Date: 20061208
  Serious: Yes (Hospitalization)
  Sender: FDA-Public Use
  Company Number: FR-BOEHRINGER INGELHEIM PHARMACEUTICALS, INC.-2006-FF-00586FF

PATIENT
  Age: 79 Year
  Sex: Female

DRUGS (2)
  1. SPIRIVA [Suspect]
     Indication: RESPIRATORY FAILURE
     Route: 055
  2. CORTISONE [Concomitant]
     Indication: WEGENER'S GRANULOMATOSIS

REACTIONS (2)
  - COORDINATION ABNORMAL [None]
  - STRABISMUS [None]
